FAERS Safety Report 8380686-X (Version None)
Quarter: 2012Q2

REPORT INFORMATION
  Report Type: 
  Country: None (occurrence: None)
  Receive Date: 20120523
  Receipt Date: 20120509
  Transmission Date: 20120825
  Serious: Yes (Hospitalization)
  Sender: FDA-Public Use
  Company Number: US-ROCHE-1058793

PATIENT
  Sex: Male
  Weight: 170.1 kg

DRUGS (82)
  1. FLUOROURACIL [Suspect]
     Indication: COLORECTAL CANCER METASTATIC
     Dosage: BOLUS, LAST DOSE PRIOR TO ONSET OF SAE WAS  13/MAR/2012
     Dates: start: 20111004
  2. CARAFATE [Concomitant]
     Route: 048
     Dates: start: 20120308
  3. ONDANSETRON [Concomitant]
     Route: 048
     Dates: start: 20120323, end: 20120330
  4. ISORDIL [Concomitant]
     Route: 048
     Dates: start: 20120324, end: 20120324
  5. DECADRON [Concomitant]
     Route: 048
     Dates: start: 20120324, end: 20120324
  6. TYLENOL [Concomitant]
     Route: 048
     Dates: start: 20120323, end: 20120330
  7. MICONAZOLE [Concomitant]
     Dates: start: 20120417, end: 20120419
  8. LEVAQUIN [Concomitant]
     Route: 048
     Dates: start: 20120420
  9. MG SULFATE [Concomitant]
     Route: 042
     Dates: start: 20120324, end: 20120324
  10. COZAAR [Concomitant]
     Route: 048
     Dates: start: 20120324, end: 20120330
  11. COZAAR [Concomitant]
     Dates: start: 20120417, end: 20120419
  12. AMBIEN [Concomitant]
     Dates: start: 20120330, end: 20120413
  13. HYDROXYZINE [Concomitant]
     Route: 048
     Dates: start: 20120404, end: 20120413
  14. AMLODIPINE BESYLATE [Concomitant]
     Route: 048
     Dates: start: 20100722
  15. CITALOPRAM HYDROBROMIDE [Concomitant]
     Route: 048
     Dates: start: 20090101
  16. EMEND [Concomitant]
     Dates: start: 20111129
  17. LEVAQUIN [Concomitant]
     Dates: start: 20120105
  18. AVASTIN [Suspect]
     Indication: COLORECTAL CANCER METASTATIC
     Dosage: DATE OF MOST RECENT CYCLE PRIOR TO ONSET:13/MAR/2012
     Dates: start: 20111004
  19. AUGMENTIN [Concomitant]
     Route: 048
     Dates: start: 20120217, end: 20120223
  20. TRAMADOL HYDROCHLORIDE [Concomitant]
     Route: 048
     Dates: start: 20120323, end: 20120326
  21. PREDNISONE [Concomitant]
     Route: 048
     Dates: start: 20120418, end: 20120418
  22. SOLU-MEDROL [Concomitant]
     Route: 042
     Dates: start: 20120416, end: 20120416
  23. PERCODAN (UNITED STATES) [Concomitant]
     Route: 048
     Dates: start: 20120401, end: 20120413
  24. LOMOTIL [Concomitant]
     Dates: start: 20111003
  25. ALOXI [Concomitant]
     Dates: start: 20111004
  26. COMPAZINE [Concomitant]
     Route: 023
     Dates: start: 20111213
  27. TEMAZEPAM [Concomitant]
     Route: 048
     Dates: start: 20120323, end: 20120330
  28. HYDROXYZINE [Concomitant]
     Route: 048
     Dates: start: 20120416, end: 20120419
  29. NARCAN [Concomitant]
     Route: 042
     Dates: start: 20120326, end: 20120330
  30. BENICAR [Concomitant]
     Route: 048
     Dates: start: 20120331, end: 20120413
  31. TRAMADOL HYDROCHLORIDE [Concomitant]
     Route: 048
     Dates: start: 20120330, end: 20120413
  32. DEXAMETHASONE [Concomitant]
     Route: 042
     Dates: start: 20111004
  33. ZOFRAN [Concomitant]
     Route: 049
     Dates: start: 20111213
  34. VANCOMYCIN [Concomitant]
     Route: 042
     Dates: start: 20120324, end: 20120326
  35. OLMESARTAN MEDOXOMIL [Concomitant]
     Route: 048
     Dates: start: 20120324, end: 20120324
  36. HYDRALAZINE HCL [Concomitant]
     Route: 048
     Dates: start: 20120416, end: 20120419
  37. PREDNISONE [Concomitant]
     Dates: start: 20120327, end: 20120413
  38. DEXAMETHASONE [Concomitant]
     Dates: start: 20101004, end: 20120331
  39. DIOVAN [Concomitant]
     Dates: start: 20110303
  40. HYDRALAZINE HCL [Concomitant]
     Route: 048
     Dates: start: 20090101
  41. ATARAX [Concomitant]
     Route: 048
     Dates: start: 20120207
  42. PROCHLORPERAZINE [Concomitant]
     Dates: start: 20120323, end: 20120330
  43. ONDANSETRON [Concomitant]
     Route: 042
     Dates: start: 20120323, end: 20120323
  44. LIDOCAINE [Concomitant]
     Route: 042
     Dates: start: 20120324, end: 20120324
  45. PROTONIX [Concomitant]
     Route: 048
     Dates: start: 20120330, end: 20120413
  46. TRAMADOL HYDROCHLORIDE [Concomitant]
     Dates: start: 20120416, end: 20120419
  47. INDOMETHACIN [Concomitant]
     Dates: start: 20080101
  48. ALPRAZOLAM [Concomitant]
     Route: 048
     Dates: start: 20110901
  49. MAGNESIUM [Concomitant]
     Dosage: 2 MG
     Dates: start: 20111004
  50. LISINOPRIL [Concomitant]
  51. OXALIPLATIN [Suspect]
     Indication: COLORECTAL CANCER METASTATIC
     Dosage: LAST DOSE PRIOR TO ONSET OF SAE WAS  13/MAR/2012
     Dates: start: 20111004
  52. HYDROCODONE [Concomitant]
     Route: 048
     Dates: start: 20120323, end: 20120326
  53. PEPCID [Concomitant]
     Route: 048
     Dates: start: 20120324, end: 20120330
  54. ROCEPHIN [Concomitant]
     Route: 042
     Dates: start: 20120323, end: 20120323
  55. IMODIUM [Concomitant]
     Route: 048
     Dates: start: 20120418, end: 20120419
  56. MORPHINE [Concomitant]
     Route: 042
     Dates: start: 20120323, end: 20120323
  57. MORPHINE [Concomitant]
     Dates: start: 20120324, end: 20120327
  58. CYCLOBENAZPRINE [Concomitant]
     Route: 048
     Dates: start: 20120324, end: 20120413
  59. PNEUMOVAX 23 [Concomitant]
     Dates: start: 20120325, end: 20120325
  60. FLOMAX [Concomitant]
     Route: 048
     Dates: start: 20120327, end: 20120413
  61. FLOMAX [Concomitant]
     Route: 048
     Dates: start: 20120416, end: 20120419
  62. DIAZEPAM [Concomitant]
     Route: 048
     Dates: start: 20120329, end: 20120329
  63. AMBIEN [Concomitant]
     Route: 048
     Dates: start: 20120416, end: 20120419
  64. AUGMENTIN [Concomitant]
     Route: 048
     Dates: start: 20120228, end: 20120306
  65. LOVENOX [Concomitant]
     Route: 058
     Dates: start: 20120324, end: 20120329
  66. LEUCOVORIN CALCIUM [Suspect]
     Indication: COLORECTAL CANCER METASTATIC
     Dosage: LAST DOSE PRIOR TO ONSET OF SAE WAS  13/MAR/2012
     Dates: start: 20111004
  67. FLUOROURACIL [Suspect]
     Dosage: INFUSION DOSE
     Dates: start: 20111004
  68. DILAUDID [Concomitant]
     Route: 042
     Dates: start: 20120207, end: 20120207
  69. LEVOTHYROXINE SODIUM [Concomitant]
     Route: 048
     Dates: start: 20120228
  70. CEFEPIME [Concomitant]
     Route: 042
     Dates: start: 20120324, end: 20120327
  71. PROCHLORPERAZINE [Concomitant]
     Route: 048
     Dates: start: 20120323, end: 20120330
  72. IMODIUM [Concomitant]
     Route: 048
     Dates: start: 20120323, end: 20120330
  73. TYLENOL [Concomitant]
     Dates: start: 20120416, end: 20120419
  74. SOLU-MEDROL [Concomitant]
     Route: 011
     Dates: start: 20120407, end: 20120407
  75. FLOMAX [Concomitant]
     Route: 048
     Dates: start: 20120326, end: 20120327
  76. OXYCODONE/ACETAMINOPHEN [Concomitant]
     Route: 048
     Dates: start: 20120327, end: 20120413
  77. PERCOCET [Concomitant]
     Dates: start: 20120416, end: 20120419
  78. IMDUR [Concomitant]
     Dates: start: 20100101
  79. LABETALOL HCL [Concomitant]
     Dates: start: 20090101
  80. LASIX [Concomitant]
     Dates: start: 20090101, end: 20120207
  81. LEVOTHYROXINE SODIUM [Concomitant]
     Dates: start: 20010101, end: 20120227
  82. FAMOTIDINE [Concomitant]

REACTIONS (1)
  - POLYARTHRITIS [None]
